FAERS Safety Report 9068923 (Version 1)
Quarter: 2013Q1

REPORT INFORMATION
  Report Type: Spontaneous
  Country: US (occurrence: None)
  Receive Date: 20130213
  Receipt Date: 20130213
  Transmission Date: 20140127
  Serious: No
  Sender: FDA-Public Use
  Company Number: None

PATIENT
  Age: 71 Year
  Sex: Female
  Weight: 58.97 kg

DRUGS (1)
  1. CYMBALTA, 30 MG, LILLY [Suspect]
     Indication: DEPRESSION
     Dates: start: 20120816, end: 20121003

REACTIONS (1)
  - Hot flush [None]
